FAERS Safety Report 8386796-5 (Version None)
Quarter: 2012Q2

REPORT INFORMATION
  Report Type: 
  Country: None (occurrence: None)
  Receive Date: 20120525
  Receipt Date: 20120514
  Transmission Date: 20120825
  Serious: Yes (Hospitalization)
  Sender: FDA-Public Use
  Company Number: US-BRISTOL-MYERS SQUIBB COMPANY-16572919

PATIENT
  Age: 67 Year
  Sex: Female

DRUGS (16)
  1. ERLOTINIB HYDROCHLORIDE [Suspect]
     Indication: NON-SMALL CELL LUNG CANCER
     Dosage: 1 DF: 1 TABLET, 150MG,INTER FROM 31MAR12-4APR12,REST ON 5APR12; THERAPY UNTIL 30APR12.
     Route: 048
     Dates: start: 20120217
  2. ASPIRIN [Concomitant]
     Route: 048
  3. ONDANSETRON [Concomitant]
     Indication: VOMITING
     Dosage: 1 DF: 1 TABLET, STRENGTH: 4MG
     Route: 060
  4. HYDROCODONE BITARTRATE [Concomitant]
     Indication: PAIN
     Dosage: 1 DF: 1-2 TABLETS, STRENGTH: 10 MG
     Route: 048
  5. ONDANSETRON [Concomitant]
     Indication: NAUSEA
     Dosage: 1 DF: 1 TABLET, STRENGTH: 4MG
     Route: 060
  6. SENOKOT [Concomitant]
     Indication: CONSTIPATION
     Dosage: 1 DF: 2 TABLETS
     Route: 048
  7. TRILIPIX [Concomitant]
     Dosage: 1 DF: 1 CAPSULE
     Route: 048
  8. CRESTOR [Concomitant]
     Dosage: 1 DF: ! TABLET, STRENGTH: 40MG
     Route: 048
  9. GEMFIBROZIL [Concomitant]
     Dosage: 1 DF: 1 TABLET, STRENGTH: 600MG
     Route: 048
  10. ALPRAZOLAM [Concomitant]
     Indication: ANXIETY
     Dosage: 1 DF: 1 TABLET, DOSAGE STRENTH: 0.5 MG
     Route: 048
  11. DIGOXIN [Concomitant]
     Dosage: 1 DF: 1 TABLET, STRENGTH: .125 MG
     Route: 048
  12. HYDROCODONE BITARTRATE [Concomitant]
     Dosage: 1 DF: 1-2 TABLETS, STRENGTH: 10 MG
     Route: 048
  13. METOPROLOL TARTRATE [Concomitant]
     Dosage: 1 DF: 1 TABLET, STRENGTH: 25 MG
     Route: 048
  14. DASATINIB [Suspect]
     Indication: NON-SMALL CELL LUNG CANCER
     Dosage: 1 DF:1 TAB,50MG AND 20MG LOT# L62806,INTER FROM 31MAR12-4APR12,REST 5APR12; THERAPY UNTIL 30APR12.
     Route: 048
     Dates: start: 20120217
  15. LANTUS [Concomitant]
     Dosage: 1 DF: 40 UNITS
     Route: 058
  16. LORAZEPAM [Concomitant]
     Dosage: 1 DF: 1 TABLET, STRENGTH: 25MG, AT BEDTIME
     Route: 048

REACTIONS (5)
  - CHRONIC OBSTRUCTIVE PULMONARY DISEASE [None]
  - PLEURAL EFFUSION [None]
  - ACUTE RESPIRATORY FAILURE [None]
  - CARDIAC FAILURE CONGESTIVE [None]
  - DYSPNOEA [None]
